FAERS Safety Report 6341376-8 (Version None)
Quarter: 2009Q3

REPORT INFORMATION
  Report Type: 
  Country: None (occurrence: None)
  Receive Date: 20090901
  Receipt Date: 20090901
  Transmission Date: 20100115
  Serious: Yes (Other)
  Sender: FDA-Public Use
  Company Number: None

PATIENT
  Age: 37 Year
  Sex: Female
  Weight: 68.2 kg

DRUGS (2)
  1. BUPROPION HCL XL 300MG PER TABLET WATSON LABORATORIES [Suspect]
     Indication: ATTENTION DEFICIT/HYPERACTIVITY DISORDER
     Dosage: 300MG 1X/DAILY ORAL TABLET
     Route: 048
     Dates: start: 20090306, end: 20090317
  2. BUPROPION HCL XL 300MG PER TABLET WATSON LABORATORIES [Suspect]
     Indication: DEPRESSION
     Dosage: 300MG 1X/DAILY ORAL TABLET
     Route: 048
     Dates: start: 20090306, end: 20090317

REACTIONS (24)
  - ARRHYTHMIA [None]
  - CARDIAC DISORDER [None]
  - CHEST PAIN [None]
  - CONDITION AGGRAVATED [None]
  - CONTUSION [None]
  - DEPRESSION [None]
  - DIZZINESS [None]
  - DYSPNOEA [None]
  - HYPERTENSION [None]
  - INSOMNIA [None]
  - MIGRAINE [None]
  - MOOD SWINGS [None]
  - MYOCARDIAL INFARCTION [None]
  - NAUSEA [None]
  - NO THERAPEUTIC RESPONSE [None]
  - PALPITATIONS [None]
  - PRODUCT SUBSTITUTION ISSUE [None]
  - RESPIRATORY DISORDER [None]
  - SLEEP APNOEA SYNDROME [None]
  - SPEECH DISORDER [None]
  - SYNCOPE [None]
  - TACHYCARDIA [None]
  - THIRST [None]
  - THROAT TIGHTNESS [None]
